FAERS Safety Report 9457189 (Version 1)
Quarter: 2013Q3

REPORT INFORMATION
  Report Type: Spontaneous
  Country: US (occurrence: US)
  Receive Date: 20130814
  Receipt Date: 20130814
  Transmission Date: 20140515
  Serious: Yes (Hospitalization)
  Sender: FDA-Public Use
  Company Number: US-AMGEN-USASP2013056476

PATIENT
  Age: 32 Year
  Sex: Female

DRUGS (5)
  1. NEULASTA [Suspect]
     Indication: PRODUCT USED FOR UNKNOWN INDICATION
     Dosage: UNK
     Route: 065
     Dates: start: 20130808
  2. ADRIAMYCIN                         /00330901/ [Concomitant]
     Indication: BREAST CANCER
     Dosage: UNK
     Dates: start: 20130807
  3. ADRIAMYCIN                         /00330901/ [Concomitant]
     Indication: RENAL CELL CARCINOMA
  4. CYTOXAN [Concomitant]
     Indication: BREAST CANCER
     Dosage: UNK
     Dates: start: 20130807
  5. CYTOXAN [Concomitant]
     Indication: RENAL CELL CARCINOMA

REACTIONS (6)
  - Hypersensitivity [Unknown]
  - Vomiting [Unknown]
  - Oral pruritus [Unknown]
  - Pruritus [Unknown]
  - Lip swelling [Unknown]
  - Urticaria [Unknown]
